FAERS Safety Report 4704904-1 (Version None)
Quarter: 2005Q3

REPORT INFORMATION
  Report Type: 
  Country: None (occurrence: None)
  Receive Date: 20050701
  Receipt Date: 20050622
  Transmission Date: 20060218
  Serious: Yes (Hospitalization, Other)
  Sender: FDA-Public Use
  Company Number: PHBS2005US09009

PATIENT
  Age: 35 Year
  Sex: Female

DRUGS (7)
  1. METOPROLOL [Suspect]
     Indication: HYPERTENSION
     Dosage: 25 MG, BID
  2. METOPROLOL [Suspect]
     Dosage: 50 MG, BID
  3. PHENOXYBENZAMINE [Concomitant]
     Dosage: 10 MG, BID
  4. FUROSEMIDE [Concomitant]
  5. MAGNESIUM SULFATE [Concomitant]
  6. MEPIVACAINE HCL [Concomitant]
     Indication: ANAESTHESIA
  7. FENTANYL [Concomitant]
     Indication: ANAESTHESIA

REACTIONS (4)
  - CAESAREAN SECTION [None]
  - DRUG EXPOSURE DURING PREGNANCY [None]
  - GESTATIONAL DIABETES [None]
  - NORMAL NEWBORN [None]
